FAERS Safety Report 6850021-4 (Version None)
Quarter: 2010Q3

REPORT INFORMATION
  Report Type: 
  Country: None (occurrence: None)
  Receive Date: 20100716
  Receipt Date: 20071106
  Transmission Date: 20110219
  Serious: Yes (Other)
  Sender: FDA-Public Use
  Company Number: US-PFIZER INC-2007085849

PATIENT
  Sex: Female
  Weight: 68 kg

DRUGS (9)
  1. CHANTIX [Suspect]
     Indication: SMOKING CESSATION THERAPY
     Dates: start: 20070701, end: 20070101
  2. WELLBUTRIN [Concomitant]
     Indication: NERVOUS SYSTEM DISORDER
  3. RANITIDINE [Concomitant]
  4. SALSALATE [Concomitant]
  5. METHYLPHENIDATE [Concomitant]
  6. AMLODIPINE BESYLATE [Concomitant]
  7. LONOX [Concomitant]
     Dosage: AS NEEDED
  8. CYCLOBENZAPRINE [Concomitant]
  9. TRAZODONE HYDROCHLORIDE [Concomitant]
     Indication: INSOMNIA

REACTIONS (2)
  - DEAFNESS [None]
  - MENIERE'S DISEASE [None]
